FAERS Safety Report 23271950 (Version 1)
Quarter: 2023Q4

REPORT INFORMATION
  Report Type: Spontaneous
  Country: CA (occurrence: CA)
  Receive Date: 20231207
  Receipt Date: 20231207
  Transmission Date: 20240110
  Serious: Yes (Other)
  Sender: FDA-Public Use
  Company Number: CA-FreseniusKabi-FK202319773

PATIENT
  Age: 56 Year
  Sex: Female

DRUGS (3)
  1. FENTANYL [Suspect]
     Active Substance: FENTANYL\FENTANYL CITRATE
     Indication: Sedation
     Dosage: DOSAGE FORM: NOT SPECIFIED
     Route: 040
  2. MIDAZOLAM HYDROCHLORIDE [Suspect]
     Active Substance: MIDAZOLAM HYDROCHLORIDE
     Indication: Sedation
     Dosage: DOSAGE FORM: AEROSOL?ROUTE: INTRAVENOUS BOLUS?(DISCREPANT INFORMATION OF ROUTE AND DOSAGE FORM AS PE
  3. TRAZODONE [Concomitant]
     Active Substance: TRAZODONE HYDROCHLORIDE
     Indication: Product used for unknown indication
     Dosage: DOSAGE FORM: TABLET

REACTIONS (2)
  - Aphasia [Unknown]
  - Apnoea [Unknown]
